FAERS Safety Report 10163616 (Version 2)
Quarter: 2014Q2

REPORT INFORMATION
  Report Type: Spontaneous
  Country: DE (occurrence: DE)
  Receive Date: 20140509
  Receipt Date: 20140609
  Transmission Date: 20141212
  Serious: Yes (Other)
  Sender: FDA-Public Use
  Company Number: DE-PFIZER INC-2014125930

PATIENT
  Age: 74 Year
  Sex: Female
  Weight: 87 kg

DRUGS (6)
  1. LYRICA [Suspect]
     Indication: NEURALGIA
     Dosage: 75 MG, 2X/DAY
     Route: 048
     Dates: start: 2008
  2. LYRICA [Suspect]
     Dosage: 150 MG, 2X/DAY
     Route: 048
     Dates: start: 20140303
  3. VERSATIS [Concomitant]
     Dosage: UNK
     Dates: start: 201403
  4. QUTENZA [Concomitant]
     Dosage: UNK
     Dates: start: 20140113, end: 20140113
  5. TRAMADOL [Concomitant]
     Dosage: 50 MG, UNK
     Route: 048
     Dates: start: 201312
  6. DIGITALIS [Concomitant]
     Dosage: UNK

REACTIONS (2)
  - Macular degeneration [Unknown]
  - Cyst [Unknown]
